FAERS Safety Report 5553489-9 (Version None)
Quarter: 2007Q4

REPORT INFORMATION
  Report Type: 
  Country: None (occurrence: None)
  Receive Date: 20071213
  Receipt Date: 20071204
  Transmission Date: 20080405
  Serious: Yes (Death)
  Sender: FDA-Public Use
  Company Number: US-ABBOTT-07P-163-0427407-00

PATIENT
  Age: 58 Year
  Sex: Female

DRUGS (1)
  1. VICODIN [Suspect]
     Indication: PROCEDURAL PAIN
     Route: 048

REACTIONS (2)
  - ANASTOMOTIC LEAK [None]
  - POST PROCEDURAL COMPLICATION [None]
